FAERS Safety Report 12673301 (Version 1)
Quarter: 2016Q3

REPORT INFORMATION
  Report Type: Spontaneous
  Country: US (occurrence: US)
  Receive Date: 20160822
  Receipt Date: 20160822
  Transmission Date: 20161109
  Serious: No
  Sender: FDA-Public Use
  Company Number: US-DRREDDYS-PRS/USA/16/0080359

PATIENT
  Sex: 0

DRUGS (1)
  1. ZEMBRACE SYMTOUCH [Suspect]
     Active Substance: SUMATRIPTAN SUCCINATE
     Indication: PRODUCT USED FOR UNKNOWN INDICATION
     Dosage: 3 MG/0.5 ML
     Route: 065
     Dates: start: 201605

REACTIONS (2)
  - Palpitations [Unknown]
  - Drug intolerance [Unknown]
